FAERS Safety Report 6496805-6 (Version None)
Quarter: 2009Q4

REPORT INFORMATION
  Report Type: 
  Country: None (occurrence: None)
  Receive Date: 20091125
  Receipt Date: 20090402
  Transmission Date: 20100525
  Serious: Yes (Hospitalization)
  Sender: FDA-Public Use
  Company Number: 2009BH005364

PATIENT
  Age: 59 Year
  Sex: Female

DRUGS (15)
  1. DIANEAL [Suspect]
     Indication: PERITONEAL DIALYSIS
     Dosage: 9.5 L; EVERY DAY; IP
     Route: 033
     Dates: start: 20070101
  2. INSULIN [Concomitant]
  3. ASPIRIN [Concomitant]
  4. COREG [Concomitant]
  5. CRESTOR [Concomitant]
  6. EPOGEN [Concomitant]
  7. ERGOCALCIFEROL [Concomitant]
  8. IRON [Concomitant]
  9. ISOSORBIDE [Concomitant]
  10. LISINOPRIL [Concomitant]
  11. NOVOLOG [Concomitant]
  12. LOPID [Concomitant]
  13. RENA-VITE [Concomitant]
  14. RENAGEL [Concomitant]
  15. SENSIPAR [Concomitant]

REACTIONS (2)
  - PERITONITIS BACTERIAL [None]
  - PROCEDURAL PAIN [None]
